FAERS Safety Report 21813584 (Version 4)
Quarter: 2023Q1

REPORT INFORMATION
  Report Type: Spontaneous
  Country: US (occurrence: US)
  Receive Date: 20230103
  Receipt Date: 20230331
  Transmission Date: 20230417
  Serious: Yes (Hospitalization, Other)
  Sender: FDA-Public Use
  Company Number: US-BRISTOL-MYERS SQUIBB COMPANY-2023-000634

PATIENT
  Age: 68 Year
  Sex: Female

DRUGS (31)
  1. REVLIMID [Suspect]
     Active Substance: LENALIDOMIDE
     Indication: Plasma cell myeloma
     Route: 048
     Dates: start: 20200103
  2. ELIQUIS [Concomitant]
     Active Substance: APIXABAN
     Indication: Product used for unknown indication
     Route: 048
  3. GABAPENTIN [Concomitant]
     Active Substance: GABAPENTIN
     Indication: Product used for unknown indication
     Route: 048
     Dates: start: 20190625
  4. HYDROXYZINE HYDROCHLORIDE [Concomitant]
     Active Substance: HYDROXYZINE HYDROCHLORIDE
     Indication: Product used for unknown indication
     Dosage: 1 TABLET AS NEEDED ORALLY EVERY 8 HOURS
     Route: 048
     Dates: start: 20200515
  5. AMLODIPINE BESYLATE [Concomitant]
     Active Substance: AMLODIPINE BESYLATE
     Indication: Product used for unknown indication
     Route: 048
     Dates: start: 20191021
  6. PEPCID [Concomitant]
     Active Substance: FAMOTIDINE
     Indication: Product used for unknown indication
     Dosage: 1 TABLET AT BED TIME ORALLY ONCE A DAY.
     Route: 048
     Dates: start: 20220628
  7. GLICLAZIDE [Concomitant]
     Active Substance: GLICLAZIDE
     Indication: Product used for unknown indication
     Route: 048
     Dates: start: 20200213
  8. CYANOCOBALAMIN VIAL [Concomitant]
     Indication: Product used for unknown indication
     Dates: start: 20221121
  9. SYNTHROID [Concomitant]
     Active Substance: LEVOTHYROXINE SODIUM
     Indication: Product used for unknown indication
     Dosage: 1 TABLET ON AN EMPTY STOMACH IN THE MORNING ORALLY ONCE DAILY.
     Route: 048
  10. DRONEDARONE HYDROCHLORIDE [Concomitant]
     Active Substance: DRONEDARONE HYDROCHLORIDE
     Indication: Product used for unknown indication
     Dosage: 1 TABLET WITH MEALS ORALLY TWICE DAILY.
     Route: 048
  11. ESTRADIOL VALERATE [Concomitant]
     Active Substance: ESTRADIOL VALERATE
     Indication: Product used for unknown indication
     Route: 030
     Dates: start: 20210621
  12. DEXAMETHASONE [Concomitant]
     Active Substance: DEXAMETHASONE
     Indication: Product used for unknown indication
     Dosage: 5 TABLETS ORALLY ONCE WEEKLY.
     Route: 048
  13. KLOR-CON M20 [Concomitant]
     Active Substance: POTASSIUM CHLORIDE
     Indication: Product used for unknown indication
     Dosage: 4 TABLETS DAILY ORALLY ONCE A DAY.
     Route: 048
     Dates: start: 20190923
  14. VALACYCLOVIR HYDROCHLORIDE [Concomitant]
     Active Substance: VALACYCLOVIR HYDROCHLORIDE
     Indication: Product used for unknown indication
     Route: 048
     Dates: start: 20221121
  15. PANTOPRAZOLE SODIUM [Concomitant]
     Active Substance: PANTOPRAZOLE SODIUM
     Indication: Product used for unknown indication
     Dosage: DELAYED RELEASE
     Route: 048
  16. FLUOXETINE HYDROCHLORIDE [Concomitant]
     Active Substance: FLUOXETINE HYDROCHLORIDE
     Indication: Product used for unknown indication
     Dosage: NOTES- PRN
     Route: 048
     Dates: start: 20170905
  17. VITAMIN D3 [Concomitant]
     Active Substance: CHOLECALCIFEROL
     Indication: Product used for unknown indication
     Route: 048
  18. LOPERAMIDE HYDROCHLORIDE [Concomitant]
     Active Substance: LOPERAMIDE HYDROCHLORIDE
     Indication: Product used for unknown indication
     Dosage: CONTINUE LOMOTIL 2.5-0.025 MG TABLET, SIG: I TABLET AS NEEDED ORALLY FOUR TIMES A DAY START DATE: 04
     Route: 048
     Dates: start: 20180403
  19. NEUPOGEN [Concomitant]
     Active Substance: FILGRASTIM
     Indication: Product used for unknown indication
     Route: 058
  20. CHOLESTYRAMINE [Concomitant]
     Active Substance: CHOLESTYRAMINE
     Indication: Product used for unknown indication
     Dosage: CHOLESTYRAMINE 4 GM PACKET, SIG: 1 PACKET MIXED WITH WATER OR NON-CARBONATED DRINK ORALLY 6 TIMES DA
     Dates: start: 20191021
  21. BENAZEPRIL HYDROCHLORIDE [Concomitant]
     Active Substance: BENAZEPRIL HYDROCHLORIDE
     Indication: Product used for unknown indication
     Dosage: BENAZEPRIL HCI 40 MG TABLET, SIG: 1 TABLET ORALLY ONCE A DAY
     Route: 048
  22. PROCHLORPERAZINE MALEATE [Concomitant]
     Active Substance: PROCHLORPERAZINE MALEATE
     Indication: Product used for unknown indication
     Dosage: 1 TABLET AS NEEDED ORALLY ONCE A DAY
     Route: 048
     Dates: start: 20220926
  23. LASIX [Concomitant]
     Active Substance: FUROSEMIDE
     Indication: Product used for unknown indication
     Route: 048
  24. TIZANIDINE HYDROCHLORIDE [Concomitant]
     Active Substance: TIZANIDINE HYDROCHLORIDE
     Indication: Product used for unknown indication
     Route: 048
     Dates: start: 20200417
  25. MORPHINE SULFATE [Concomitant]
     Active Substance: MORPHINE SULFATE
     Indication: Product used for unknown indication
     Dosage: 1 TABLET AS NEEDED ORALLY EVERY 4 HRS
     Route: 048
     Dates: start: 20221024
  26. ACETAMINOPHEN\HYDROCODONE [Concomitant]
     Active Substance: ACETAMINOPHEN\HYDROCODONE
     Indication: Product used for unknown indication
     Dosage: 10-325 MG TABLET, SIG: 1 TABLET AS NEEDED ORALLY EVERY 6 HRS
     Route: 048
     Dates: start: 20221121, end: 20221221
  27. FENTANYL [Concomitant]
     Active Substance: FENTANYL
     Indication: Product used for unknown indication
     Dosage: 75 MCG/HR PATCH 72 HOUR, SIG: 1 PATCH TO SKIN TRANSDERMAL EVERY 72 HOURS
     Dates: start: 20221121, end: 20221221
  28. IBUPROFEN [Concomitant]
     Active Substance: IBUPROFEN
     Indication: Product used for unknown indication
     Dosage: 1 TABLET WITH FOOD OR MILK AS NEEDED ORALLY EVERY 8 HRS
     Route: 048
     Dates: start: 20220628
  29. PROMETHAZINE HYDROCHLORIDE [Concomitant]
     Active Substance: PROMETHAZINE HYDROCHLORIDE
     Indication: Product used for unknown indication
     Dosage: 1 TABLET AS NEEDED ORALLY EVERY 12 HRS, NOTES: PRN
     Route: 048
  30. DIAZEPAM [Concomitant]
     Active Substance: DIAZEPAM
     Indication: Product used for unknown indication
     Dosage: I TABLET AS NEEDED ORALLY THREE TIMES A DAY
     Route: 048
     Dates: start: 20221121
  31. HYDROCHLOROTHIAZIDE [Concomitant]
     Active Substance: HYDROCHLOROTHIAZIDE
     Indication: Product used for unknown indication
     Dosage: 1 TABLET IN THE MORNING ORALLY ONCE A DAY
     Route: 048

REACTIONS (2)
  - Atrial fibrillation [Unknown]
  - COVID-19 [Recovered/Resolved]
